FAERS Safety Report 22347666 (Version 1)
Quarter: 2023Q2

REPORT INFORMATION
  Report Type: Spontaneous
  Country: ES (occurrence: ES)
  Receive Date: 20230522
  Receipt Date: 20230522
  Transmission Date: 20230722
  Serious: Yes (Hospitalization, Other)
  Sender: FDA-Public Use
  Company Number: ES-AEMPS-1364345

PATIENT
  Age: 85 Year
  Sex: Male

DRUGS (4)
  1. ENALAPRIL [Suspect]
     Active Substance: ENALAPRIL
     Indication: Hypertension
     Dosage: 20 MILLIGRAM, ONCE A DAY (20 MG 1-0-0 16/01/2015 - ACTUALMENTE)
     Route: 048
     Dates: start: 20150116
  2. FINASTERIDE [Suspect]
     Active Substance: FINASTERIDE
     Indication: Benign prostatic hyperplasia
     Dosage: 5 MILLIGRAM, ONCE A DAY (5MG 0-0-1)
     Route: 048
     Dates: start: 20211016
  3. AMLODIPINE [Suspect]
     Active Substance: AMLODIPINE BESYLATE
     Indication: Hypertension
     Dosage: 5 MILLIGRAM, ONCE A DAY (~5 MG 0-0-1 13/02/2018 - ACTUALMENTE)
     Route: 048
     Dates: start: 20180213
  4. ATORVASTATIN [Suspect]
     Active Substance: ATORVASTATIN
     Indication: Hypercholesterolaemia
     Dosage: 80 MILLIGRAM, ONCE A DAY(80MG 0-0-1 17/12/2012 - ACTUALMENTE)
     Route: 048
     Dates: start: 20121217

REACTIONS (1)
  - Pancreatitis [Recovering/Resolving]

NARRATIVE: CASE EVENT DATE: 20220713
